FAERS Safety Report 5065506-3 (Version None)
Quarter: 2006Q3

REPORT INFORMATION
  Report Type: 
  Country: None (occurrence: None)
  Receive Date: 20060731
  Receipt Date: 20060724
  Transmission Date: 20061208
  Serious: Yes (Hospitalization)
  Sender: FDA-Public Use
  Company Number: IT-BRISTOL-MYERS SQUIBB COMPANY-13452479

PATIENT
  Age: 83 Year
  Sex: Male

DRUGS (5)
  1. COUMADIN [Suspect]
     Indication: ATRIAL FIBRILLATION
     Route: 048
     Dates: start: 20031020, end: 20051223
  2. BELIVON [Concomitant]
  3. ALAPRIL [Concomitant]
  4. EUTIROX [Concomitant]
  5. AKINETON [Concomitant]

REACTIONS (4)
  - APHASIA [None]
  - CEREBRAL HAEMORRHAGE [None]
  - DYSPHAGIA [None]
  - HEMIPARESIS [None]
